FAERS Safety Report 19349627 (Version 2)
Quarter: 2021Q2

REPORT INFORMATION
  Report Type: Report from Study
  Country: KR (occurrence: KR)
  Receive Date: 20210531
  Receipt Date: 20210605
  Transmission Date: 20210717
  Serious: Yes (Hospitalization, Other)
  Sender: FDA-Public Use
  Company Number: KR-AMGEN-KORCT2021082161

PATIENT
  Age: 82 Year
  Sex: Female

DRUGS (26)
  1. FLUCONAZOLE. [Concomitant]
     Active Substance: FLUCONAZOLE
     Indication: PRODUCT USED FOR UNKNOWN INDICATION
     Dosage: UNK
  2. TEICOPLANIN [Concomitant]
     Active Substance: TEICOPLANIN
     Indication: PRODUCT USED FOR UNKNOWN INDICATION
     Dosage: 400 MILLIGRAM
  3. PREDNISONE. [Concomitant]
     Active Substance: PREDNISONE
     Indication: PRODUCT USED FOR UNKNOWN INDICATION
     Dosage: 100 MILLIGRAM
     Dates: start: 20180727, end: 20181210
  4. RITUXIMAB. [Concomitant]
     Active Substance: RITUXIMAB
     Indication: PRODUCT USED FOR UNKNOWN INDICATION
     Dosage: 600 MILLIGRAM
     Dates: start: 20180627
  5. AMPICILLIN + CLOXACILLIN [AMPICILLIN;CLOXACILLIN] [Concomitant]
     Indication: PRODUCT USED FOR UNKNOWN INDICATION
     Dosage: 1.5 UNK
  6. LEVOFLOXACIN. [Concomitant]
     Active Substance: LEVOFLOXACIN
     Indication: PRODUCT USED FOR UNKNOWN INDICATION
     Dosage: UNK
     Dates: start: 20181114, end: 20181114
  7. PANTOPRAZOLE [Concomitant]
     Active Substance: PANTOPRAZOLE
     Indication: PRODUCT USED FOR UNKNOWN INDICATION
     Dosage: 20 MILLIGRAM
     Dates: start: 20180626
  8. FILGRASTIM [Suspect]
     Active Substance: FILGRASTIM
     Indication: PRODUCT USED FOR UNKNOWN INDICATION
     Dosage: 0.6 UNK
     Route: 065
     Dates: start: 20180915, end: 20180915
  9. CEFEPIME [Concomitant]
     Active Substance: CEFEPIME HYDROCHLORIDE
     Indication: PRODUCT USED FOR UNKNOWN INDICATION
     Dosage: 2 UNK
     Dates: start: 20180914, end: 20180918
  10. PALONOSETRON. [Concomitant]
     Active Substance: PALONOSETRON HYDROCHLORIDE
     Indication: PRODUCT USED FOR UNKNOWN INDICATION
     Dosage: 0.25 MILLIGRAM
     Dates: start: 20180621, end: 20181210
  11. PROPACETAMOL [Concomitant]
     Active Substance: PROPACETAMOL
     Indication: PRODUCT USED FOR UNKNOWN INDICATION
     Dosage: 1 UNK
     Dates: start: 20180628, end: 20181012
  12. VINCRISTINE [Concomitant]
     Active Substance: VINCRISTINE
     Indication: PRODUCT USED FOR UNKNOWN INDICATION
     Dosage: 1.48 UNK
     Dates: start: 20180906, end: 20181210
  13. APREPITANT. [Concomitant]
     Active Substance: APREPITANT
     Indication: PRODUCT USED FOR UNKNOWN INDICATION
     Dosage: 150 MILLIGRAM
     Dates: start: 20180628, end: 20181210
  14. CYCLOPHOSPHAMIDE. [Concomitant]
     Active Substance: CYCLOPHOSPHAMIDE
     Indication: PRODUCT USED FOR UNKNOWN INDICATION
     Dosage: 790 MILLIGRAM
     Dates: start: 20180906, end: 20181210
  15. DOXORUBICIN [Concomitant]
     Active Substance: DOXORUBICIN
     Dosage: 60.4 MILLIGRAM
     Dates: start: 20180727, end: 20180727
  16. DOXORUBICIN [Concomitant]
     Active Substance: DOXORUBICIN
     Indication: PRODUCT USED FOR UNKNOWN INDICATION
     Dosage: 52.8 MILLIGRAM
     Dates: start: 20180906, end: 20181210
  17. VINCRISTINE [Concomitant]
     Active Substance: VINCRISTINE
     Dosage: 2 UNK
     Dates: start: 20180727, end: 20180727
  18. LENOGRASTIM [Concomitant]
     Active Substance: LENOGRASTIM
     Indication: PRODUCT USED FOR UNKNOWN INDICATION
     Dosage: UNK
     Dates: start: 20181114, end: 20181114
  19. VANCOMYCIN [Concomitant]
     Active Substance: VANCOMYCIN
     Indication: PRODUCT USED FOR UNKNOWN INDICATION
     Dosage: 500 MILLIGRAM
  20. CYCLOPHOSPHAMIDE. [Concomitant]
     Active Substance: CYCLOPHOSPHAMIDE
     Dosage: 1132.5 MILLIGRAM
     Dates: start: 20180727, end: 20180727
  21. RITUXIMAB. [Concomitant]
     Active Substance: RITUXIMAB
     Dosage: 1400 MILLIGRAM
     Dates: start: 20180727, end: 20181210
  22. CEFTRIAXONE. [Concomitant]
     Active Substance: CEFTRIAXONE
     Indication: PRODUCT USED FOR UNKNOWN INDICATION
     Dosage: 2 UNK
     Dates: start: 20180809, end: 20180813
  23. CHLORPHENAMINE [Concomitant]
     Active Substance: CHLORPHENIRAMINE MALEATE
     Indication: PRODUCT USED FOR UNKNOWN INDICATION
     Dosage: 4 UNK
     Dates: start: 20180628, end: 20181210
  24. FLUCONAZOLE. [Concomitant]
     Active Substance: FLUCONAZOLE
     Dosage: 200 MILLIGRAM
  25. PEGFILGRASTIM [Concomitant]
     Active Substance: PEGFILGRASTIM
     Indication: PRODUCT USED FOR UNKNOWN INDICATION
     Dosage: 6 MILLIGRAM
     Dates: start: 20180629, end: 20181211
  26. PIPERACILLIN AND TAZOBACTAM [Concomitant]
     Active Substance: PIPERACILLIN SODIUM\TAZOBACTAM SODIUM
     Indication: PRODUCT USED FOR UNKNOWN INDICATION
     Dosage: 4.5 UNK

REACTIONS (6)
  - Device related infection [Recovered/Resolved]
  - C-reactive protein increased [Recovered/Resolved]
  - Candida infection [Recovered/Resolved]
  - Dyspepsia [Recovered/Resolved]
  - Neutropenia [Recovered/Resolved]
  - Diarrhoea [Recovered/Resolved]

NARRATIVE: CASE EVENT DATE: 20180809
